FAERS Safety Report 14473561 (Version 1)
Quarter: 2018Q1

REPORT INFORMATION
  Report Type: Spontaneous
  Country: US (occurrence: US)
  Receive Date: 20180201
  Receipt Date: 20180201
  Transmission Date: 20180509
  Serious: No
  Sender: FDA-Public Use
  Company Number: US-APOTEX-2018AP005467

PATIENT

DRUGS (1)
  1. PAROXETINE. [Suspect]
     Active Substance: PAROXETINE
     Dosage: UNK
     Route: 065
     Dates: start: 2016

REACTIONS (3)
  - Throat tightness [Unknown]
  - Product substitution issue [Unknown]
  - Feeling abnormal [Unknown]
